FAERS Safety Report 8116504-4 (Version None)
Quarter: 2012Q1

REPORT INFORMATION
  Report Type: 
  Country: None (occurrence: None)
  Receive Date: 20120206
  Receipt Date: 20120127
  Transmission Date: 20120608
  Serious: Yes (Hospitalization)
  Sender: FDA-Public Use
  Company Number: US-BAYER-2011-072669

PATIENT
  Age: 29 Year
  Sex: Female
  Weight: 67.2 kg

DRUGS (5)
  1. PHENAZOPYRIDINE HCL TAB [Concomitant]
  2. YASMIN [Suspect]
     Dosage: UNK
     Dates: start: 20060501, end: 20060721
  3. PERCOCET [Concomitant]
  4. YASMIN [Suspect]
     Indication: CONTRACEPTION
     Dosage: UNK
     Dates: start: 20040501, end: 20050401
  5. AMOXICILLIN [Concomitant]
     Dosage: 500 MG, BID

REACTIONS (5)
  - INJURY [None]
  - PULMONARY EMBOLISM [None]
  - ANHEDONIA [None]
  - PAIN [None]
  - ANXIETY [None]
